FAERS Safety Report 8762469 (Version 2)
Quarter: 2012Q4

REPORT INFORMATION
  Report Type: 
  Country: JP (occurrence: JP)
  Receive Date: 20120830
  Receipt Date: 20121112
  Transmission Date: 20130627
  Serious: Yes (Hospitalization)
  Sender: FDA-Public Use
  Company Number: JP-EISAI INC-E3810-05825-SPO-JP

PATIENT
  Age: 13 Year
  Sex: Female

DRUGS (10)
  1. PARIET [Suspect]
     Route: 048
  2. VALTREX [Suspect]
     Route: 048
  3. PROTECADIN [Suspect]
     Route: 048
  4. GASMOTIN [Suspect]
     Route: 048
  5. RIZE [Suspect]
     Route: 048
  6. ANTOBRON [Suspect]
     Route: 048
  7. DOGMATYL [Suspect]
     Route: 048
  8. VICCILLIN [Suspect]
     Route: 048
  9. COCARL [Suspect]
     Route: 048
  10. DOMPERIDONE [Suspect]
     Route: 048

REACTIONS (9)
  - Renal impairment [Recovered/Resolved]
  - Intentional overdose [Unknown]
  - Fall [None]
  - Nausea [None]
  - Blood pressure decreased [None]
  - Heart rate increased [None]
  - Body temperature decreased [None]
  - Depressed level of consciousness [None]
  - Haemodialysis [None]
